FAERS Safety Report 5723822-3 (Version None)
Quarter: 2008Q2

REPORT INFORMATION
  Report Type: 
  Country: None (occurrence: None)
  Receive Date: 20080429
  Receipt Date: 20080429
  Transmission Date: 20081010
  Serious: Yes (Other)
  Sender: FDA-Public Use
  Company Number: None

PATIENT
  Age: 68 Year
  Sex: Male

DRUGS (2)
  1. LEVOFLOXACIN [Suspect]
     Indication: URINARY TRACT INFECTION
     Dosage: 500MG 1 TAB PO EVERY DAY PO
     Route: 048
     Dates: start: 20080228, end: 20080415
  2. ALLOPURINOL [Suspect]
     Indication: GOUT
     Dosage: 300MG 1 TAB PO EVERY DAY PO
     Route: 048
     Dates: start: 20080323, end: 20080325

REACTIONS (8)
  - DROOLING [None]
  - ERYTHEMA [None]
  - LIP SWELLING [None]
  - MOUTH ULCERATION [None]
  - PRURITUS [None]
  - RASH [None]
  - SELF-MEDICATION [None]
  - SKIN EXFOLIATION [None]
